FAERS Safety Report 8882630 (Version 1)
Quarter: 2012Q4

REPORT INFORMATION
  Report Type: 
  Country: FR (occurrence: FR)
  Receive Date: 20121105
  Receipt Date: 20121105
  Transmission Date: 20130627
  Serious: Yes (Hospitalization)
  Sender: FDA-Public Use
  Company Number: FR-MERCK-1211FRA000625

PATIENT
  Age: 80 Year
  Sex: Male

DRUGS (8)
  1. JANUVIA [Suspect]
     Indication: TYPE 2 DIABETES MELLITUS
     Dosage: 1 DF, QD
     Route: 048
     Dates: start: 201203, end: 20121006
  2. RANIPLEX [Concomitant]
     Indication: HIATUS HERNIA
  3. RANIPLEX [Concomitant]
     Indication: URETHRITIS
  4. PLAVIX [Concomitant]
     Indication: CORONARY ARTERY DISEASE
  5. TAREG [Concomitant]
     Indication: CORONARY ARTERY DISEASE
  6. TAHOR [Concomitant]
     Indication: CORONARY ARTERY DISEASE
  7. ZANIDIP [Concomitant]
     Indication: CORONARY ARTERY DISEASE
  8. STAGID [Concomitant]
     Indication: CORONARY ARTERY DISEASE

REACTIONS (1)
  - Lipase increased [Recovered/Resolved]
